FAERS Safety Report 7536208-6 (Version None)
Quarter: 2011Q2

REPORT INFORMATION
  Report Type: 
  Country: None (occurrence: None)
  Receive Date: 20110609
  Receipt Date: 20110526
  Transmission Date: 20111010
  Serious: Yes (Other)
  Sender: FDA-Public Use
  Company Number: CA-JNJFOC-20110600343

PATIENT
  Sex: Female
  Weight: 64 kg

DRUGS (2)
  1. PREDNISONE [Concomitant]
     Route: 065
  2. REMICADE [Suspect]
     Indication: COLITIS ULCERATIVE
     Route: 042
     Dates: start: 20110101

REACTIONS (3)
  - PAIN [None]
  - JOINT SWELLING [None]
  - COLITIS ULCERATIVE [None]
